FAERS Safety Report 4490808-9 (Version None)
Quarter: 2004Q4

REPORT INFORMATION
  Report Type: 
  Country: None (occurrence: None)
  Receive Date: 20041102
  Receipt Date: 20041026
  Transmission Date: 20050328
  Serious: Yes (Other)
  Sender: FDA-Public Use
  Company Number: ZA-ROCHE-384314

PATIENT
  Age: 25 Year
  Sex: Female
  Weight: 51 kg

DRUGS (2)
  1. ROACCUTANE [Suspect]
     Route: 048
  2. ROACCUTANE [Suspect]
     Route: 048
     Dates: start: 20040720

REACTIONS (8)
  - ABSCESS [None]
  - HIDRADENITIS [None]
  - HYPERHIDROSIS [None]
  - INFLAMMATION [None]
  - PRURITUS [None]
  - RASH PAPULAR [None]
  - RASH PUSTULAR [None]
  - RASH VESICULAR [None]
